FAERS Safety Report 6382004-5 (Version None)
Quarter: 2009Q3

REPORT INFORMATION
  Report Type: 
  Country: None (occurrence: None)
  Receive Date: 20090930
  Receipt Date: 20090922
  Transmission Date: 20100115
  Serious: Yes (Hospitalization, Disabling)
  Sender: FDA-Public Use
  Company Number: AU-ASTRAZENECA-2009SE01855

PATIENT
  Age: 61 Year
  Sex: Female
  Weight: 108 kg

DRUGS (2)
  1. CRESTOR [Suspect]
     Indication: BLOOD CHOLESTEROL INCREASED
     Route: 048
     Dates: start: 20081203, end: 20090111
  2. KARVEA [Concomitant]
     Indication: HYPERTENSION
     Route: 048

REACTIONS (4)
  - LUNG INFECTION [None]
  - MYALGIA [None]
  - OEDEMA PERIPHERAL [None]
  - ORGANISING PNEUMONIA [None]
